FAERS Safety Report 7157382-X (Version None)
Quarter: 2010Q4

REPORT INFORMATION
  Report Type: 
  Country: None (occurrence: None)
  Receive Date: 20101214
  Receipt Date: 20101209
  Transmission Date: 20110411
  Serious: Yes (Life-Threatening, Hospitalization, Other)
  Sender: FDA-Public Use
  Company Number: PHHY2009CA39360

PATIENT
  Sex: Female

DRUGS (2)
  1. EXJADE [Suspect]
     Indication: MYELODYSPLASTIC SYNDROME
     Dosage: 2500 MG,UNK
     Route: 048
  2. EXJADE [Suspect]
     Dosage: 2500 MG, OD
     Route: 048
     Dates: start: 20070401

REACTIONS (11)
  - ACUTE MYELOID LEUKAEMIA [None]
  - DIARRHOEA [None]
  - FALL [None]
  - FEMUR FRACTURE [None]
  - INFECTION [None]
  - LOWER LIMB FRACTURE [None]
  - MYELODYSPLASTIC SYNDROME TRANSFORMATION [None]
  - NEUTROPENIA [None]
  - PYREXIA [None]
  - SURGERY [None]
  - WHITE BLOOD CELL COUNT DECREASED [None]
